FAERS Safety Report 21258991 (Version 1)
Quarter: 2022Q3

REPORT INFORMATION
  Report Type: Report from Study
  Country: JP (occurrence: JP)
  Receive Date: 20220826
  Receipt Date: 20220826
  Transmission Date: 20221027
  Serious: No
  Sender: FDA-Public Use
  Company Number: JP-MSD-LAG011078-008

PATIENT
  Age: 71 Year
  Sex: Female
  Weight: 41 kg

DRUGS (4)
  1. MOLNUPIRAVIR [Suspect]
     Active Substance: MOLNUPIRAVIR
     Indication: COVID-19 treatment
     Dosage: 800 MILLIGRAM, BID
     Route: 048
     Dates: start: 20220204, end: 20220208
  2. AMOXICILLIN [Concomitant]
     Active Substance: AMOXICILLIN
     Indication: COVID-19 treatment
     Dosage: UNK
     Route: 065
  3. CALONAL [Concomitant]
     Active Substance: ACETAMINOPHEN
     Indication: COVID-19 treatment
     Dosage: UNK
     Route: 065
  4. HERBALS [Concomitant]
     Active Substance: HERBALS
     Indication: COVID-19 treatment
     Dosage: UNK
     Route: 065

REACTIONS (2)
  - Product use issue [Unknown]
  - No adverse event [Unknown]

NARRATIVE: CASE EVENT DATE: 20220204
